FAERS Safety Report 5335273-4 (Version None)
Quarter: 2007Q1

REPORT INFORMATION
  Report Type: 
  Country: None (occurrence: None)
  Receive Date: 20070308
  Receipt Date: 20070119
  Transmission Date: 20070707
  Serious: No
  Sender: FDA-Public Use
  Company Number: 2007-BP-00925BP

PATIENT
  Age: 75 Year
  Sex: Female

DRUGS (4)
  1. SPIRIVA [Suspect]
     Indication: EMPHYSEMA
     Dosage: 18 MCG (18 MCG, 1 IN 1 D) IH
     Route: 055
     Dates: start: 20060201
  2. ADVAIR (SERETIDE) [Concomitant]
  3. ALBUTEROL [Concomitant]
  4. FOSAMAX [Concomitant]

REACTIONS (1)
  - BLOOD PRESSURE INCREASED [None]
